FAERS Safety Report 13933327 (Version 2)
Quarter: 2017Q4

REPORT INFORMATION
  Report Type: Spontaneous
  Country: US (occurrence: US)
  Receive Date: 20170904
  Receipt Date: 20171027
  Transmission Date: 20180320
  Serious: No
  Sender: FDA-Public Use
  Company Number: US-ASTRAZENECA-2017SE87842

PATIENT
  Sex: Female

DRUGS (1)
  1. PULMICORT FLEXHALER [Suspect]
     Active Substance: BUDESONIDE
     Indication: ASTHMA
     Dosage: 180 UG, UNKNOWN
     Route: 055

REACTIONS (7)
  - Asthma [Not Recovered/Not Resolved]
  - Dysphonia [Unknown]
  - Drug dose omission [Not Recovered/Not Resolved]
  - Intentional device misuse [Unknown]
  - Intentional product use issue [Unknown]
  - Hypogeusia [Unknown]
  - Intentional product misuse [Unknown]
